FAERS Safety Report 6836203-6 (Version None)
Quarter: 2010Q3

REPORT INFORMATION
  Report Type: 
  Country: None (occurrence: None)
  Receive Date: 20100713
  Receipt Date: 20100705
  Transmission Date: 20110219
  Serious: Yes (Other)
  Sender: FDA-Public Use
  Company Number: JP-JNJFOC-20100601922

PATIENT
  Age: 54 Year
  Sex: Male
  Weight: 60 kg

DRUGS (6)
  1. RISPERDAL CONSTA [Suspect]
     Indication: PRODUCT USED FOR UNKNOWN INDICATION
     Route: 030
  2. RISPERDAL CONSTA [Suspect]
     Route: 030
  3. RISPERDAL CONSTA [Suspect]
     Route: 030
  4. RISPERDAL CONSTA [Suspect]
     Route: 030
  5. TELESMIN [Concomitant]
     Indication: SCHIZOPHRENIA
     Route: 048
  6. SETOUS [Concomitant]
     Indication: SCHIZOPHRENIA
     Route: 048

REACTIONS (1)
  - NEUROLEPTIC MALIGNANT SYNDROME [None]
